FAERS Safety Report 11184181 (Version 1)
Quarter: 2015Q2

REPORT INFORMATION
  Report Type: Spontaneous
  Country: US (occurrence: US)
  Receive Date: 20150612
  Receipt Date: 20150612
  Transmission Date: 20150821
  Serious: No
  Sender: FDA-Public Use
  Company Number: US-PFIZER INC-2015191440

PATIENT
  Age: 35 Year
  Sex: Male

DRUGS (1)
  1. SUTENT [Suspect]
     Active Substance: SUNITINIB MALATE
     Indication: RENAL CANCER
     Dosage: 37.5 MG, DAILY (12.5 MG, TAKE 3 CAPSULES BY MOUTH EVERY DAY))
     Dates: start: 20150327

REACTIONS (2)
  - Disease progression [Unknown]
  - Renal cancer [Unknown]
